FAERS Safety Report 16297955 (Version 1)
Quarter: 2019Q2

REPORT INFORMATION
  Report Type: Spontaneous
  Country: US (occurrence: US)
  Receive Date: 20190510
  Receipt Date: 20190510
  Transmission Date: 20190711
  Serious: Yes (Life-Threatening, Hospitalization, Other)
  Sender: FDA-Public Use
  Company Number: US-MYLANLABS-2019M1044961

PATIENT
  Age: 30 Year
  Sex: Male

DRUGS (2)
  1. IDARUBICIN [Suspect]
     Active Substance: IDARUBICIN
     Indication: MYELOID LEUKAEMIA
     Dosage: ADMINISTERED ON HOSPITAL DAY 2-4
     Route: 065
  2. CYTARABINE. [Suspect]
     Active Substance: CYTARABINE
     Indication: MYELOID LEUKAEMIA
     Dosage: ADMINISTERED ON HOSPITAL DAY 2-8
     Route: 065

REACTIONS (7)
  - Lung disorder [Unknown]
  - Acute respiratory distress syndrome [Unknown]
  - Condition aggravated [Unknown]
  - Respiratory failure [Unknown]
  - Treatment failure [Unknown]
  - Tumour lysis syndrome [Unknown]
  - Pulmonary alveolar haemorrhage [Unknown]
